FAERS Safety Report 7966343-X (Version None)
Quarter: 2011Q4

REPORT INFORMATION
  Report Type: 
  Country: None (occurrence: None)
  Receive Date: 20111208
  Receipt Date: 20111130
  Transmission Date: 20120403
  Serious: Yes (Hospitalization)
  Sender: FDA-Public Use
  Company Number: US-PFIZER INC-2011268132

PATIENT
  Sex: Female
  Weight: 58.7 kg

DRUGS (10)
  1. TORISEL [Suspect]
     Indication: BREAST CANCER METASTATIC
     Dosage: 8 MG, WEEKLY
     Route: 042
     Dates: start: 20110630, end: 20111027
  2. CALCIUM [Concomitant]
     Indication: SUPPLEMENTATION THERAPY
     Dosage: UNK
     Route: 048
     Dates: start: 20110630
  3. NERATINIB [Suspect]
     Indication: BREAST CANCER METASTATIC
     Dosage: 240 MG, 1X/DAY
     Route: 048
     Dates: start: 20110630, end: 20111029
  4. ACIPHEX [Concomitant]
     Indication: GASTROOESOPHAGEAL REFLUX DISEASE
     Dosage: UNK
     Route: 048
     Dates: start: 20110630
  5. BIOTIN [Concomitant]
     Indication: SUPPLEMENTATION THERAPY
     Dosage: UNK
     Route: 048
     Dates: start: 20110630
  6. ATIVAN [Concomitant]
     Indication: ANXIETY
     Dosage: UNK
     Route: 048
     Dates: start: 20110630
  7. IMODIUM [Concomitant]
     Indication: DIARRHOEA
     Dosage: UNK
     Route: 048
     Dates: start: 20110630
  8. PEPCID [Concomitant]
     Indication: GASTROOESOPHAGEAL REFLUX DISEASE
     Dosage: UNK
     Route: 048
     Dates: start: 20110630
  9. GAVISCON [Concomitant]
     Indication: GASTROOESOPHAGEAL REFLUX DISEASE
     Dosage: UNK
     Route: 048
     Dates: start: 20110630
  10. LEVOXYL [Concomitant]
     Indication: HYPOTHYROIDISM
     Dosage: UNK
     Route: 048
     Dates: start: 20110630

REACTIONS (4)
  - RASH [None]
  - ARTHRALGIA [None]
  - PYREXIA [None]
  - JOINT SWELLING [None]
